FAERS Safety Report 7787471-8 (Version None)
Quarter: 2011Q3

REPORT INFORMATION
  Report Type: 
  Country: None (occurrence: None)
  Receive Date: 20110929
  Receipt Date: 20110921
  Transmission Date: 20111222
  Serious: Yes (Hospitalization, Other)
  Sender: FDA-Public Use
  Company Number: US-ACTELION-A-US2011-53078

PATIENT

DRUGS (1)
  1. TRACLEER [Suspect]
     Indication: PULMONARY ARTERIAL HYPERTENSION
     Dosage: UNK
     Route: 048
     Dates: start: 20080903

REACTIONS (8)
  - DIZZINESS [None]
  - SPINAL CORD INFECTION [None]
  - CENTRAL NERVOUS SYSTEM LESION [None]
  - ASTHENIA [None]
  - TERMINAL STATE [None]
  - FALL [None]
  - CONFUSIONAL STATE [None]
  - HERPES ZOSTER [None]
